FAERS Safety Report 25443470 (Version 1)
Quarter: 2025Q2

REPORT INFORMATION
  Report Type: Spontaneous
  Country: GB (occurrence: GB)
  Receive Date: 20250617
  Receipt Date: 20250617
  Transmission Date: 20250716
  Serious: Yes (Other)
  Sender: AUROBINDO
  Company Number: GB-MHRA-EMIS-2070-58b7205e-339c-4744-ba74-1df69a5a2b39

PATIENT
  Age: 80 Year
  Sex: Female
  Weight: 79 kg

DRUGS (5)
  1. ALENDRONIC ACID [Suspect]
     Active Substance: ALENDRONIC ACID
     Indication: Product used for unknown indication
     Dosage: 1 DOSAGE FORM, EVERY WEEK (ONE TO BE TAKEN ON THE SAME DAY EACH WEEK TO PROTECT BONES. TO BE TAKEN A
     Route: 065
     Dates: start: 20250127, end: 20250328
  2. ABRYSVO [Concomitant]
     Active Substance: RECOMBINANT STABILIZED RSV A PREFUSION F ANTIGEN\RECOMBINANT STABILIZED RSV B PREFUSION F ANTIGEN
     Indication: Product used for unknown indication
     Route: 065
     Dates: start: 20250110, end: 20250222
  3. CLARITHROMYCIN [Concomitant]
     Active Substance: CLARITHROMYCIN
     Indication: Product used for unknown indication
     Dosage: 1 DOSAGE FORM, TWO TIMES A DAY
     Route: 065
     Dates: start: 20250120, end: 20250218
  4. CLARITHROMYCIN [Concomitant]
     Active Substance: CLARITHROMYCIN
     Dosage: 1 DOSAGE FORM, TWO TIMES A DAY
     Route: 065
     Dates: start: 20250324
  5. Calci d [Concomitant]
     Indication: Product used for unknown indication
     Dosage: 1 DOSAGE FORM, ONCE A DAY
     Route: 065
     Dates: start: 20250127

REACTIONS (3)
  - Dysphagia [Unknown]
  - Arthralgia [Unknown]
  - Oropharyngeal pain [Recovered/Resolved]
